FAERS Safety Report 15189777 (Version 1)
Quarter: 2018Q3

REPORT INFORMATION
  Report Type: Spontaneous
  Country: US (occurrence: US)
  Receive Date: 20180625
  Receipt Date: 20180625
  Transmission Date: 20181010
  Serious: Yes (Other)
  Sender: FDA-Public Use
  Company Number: None

PATIENT
  Age: 89 Year
  Sex: Female
  Weight: 77.6 kg

DRUGS (12)
  1. KCENTRA [Suspect]
     Active Substance: COAGULATION FACTOR IX HUMAN\COAGULATION FACTOR VII HUMAN\COAGULATION FACTOR X HUMAN\PROTEIN C\PROTEIN S HUMAN\PROTHROMBIN
     Indication: FALL
     Dosage: ?          QUANTITY:1 DF DOSAGE FORM;OTHER FREQUENCY:STAT;?
     Route: 042
     Dates: start: 20180625, end: 20180625
  2. KCENTRA [Suspect]
     Active Substance: COAGULATION FACTOR IX HUMAN\COAGULATION FACTOR VII HUMAN\COAGULATION FACTOR X HUMAN\PROTEIN C\PROTEIN S HUMAN\PROTHROMBIN
     Indication: HEAD INJURY
     Dosage: ?          QUANTITY:1 DF DOSAGE FORM;OTHER FREQUENCY:STAT;?
     Route: 042
     Dates: start: 20180625, end: 20180625
  3. BUMETANIDE. [Concomitant]
     Active Substance: BUMETANIDE
  4. OMEPRAZOLE. [Concomitant]
     Active Substance: OMEPRAZOLE
  5. ALBUTEROL. [Concomitant]
     Active Substance: ALBUTEROL
  6. GABAPENTIN. [Concomitant]
     Active Substance: GABAPENTIN
  7. WARFARIN [Concomitant]
     Active Substance: WARFARIN
  8. VITAMIN C [Concomitant]
     Active Substance: ASCORBIC ACID
  9. MULTIVITAMIN [Concomitant]
     Active Substance: VITAMINS
  10. KCENTRA [Suspect]
     Active Substance: COAGULATION FACTOR IX HUMAN\COAGULATION FACTOR VII HUMAN\COAGULATION FACTOR X HUMAN\PROTEIN C\PROTEIN S HUMAN\PROTHROMBIN
     Indication: INTERNATIONAL NORMALISED RATIO INCREASED
     Dosage: ?          QUANTITY:1 DF DOSAGE FORM;OTHER FREQUENCY:STAT;?
     Route: 042
     Dates: start: 20180625, end: 20180625
  11. METOPROLOL. [Concomitant]
     Active Substance: METOPROLOL
  12. PAROXETINE. [Concomitant]
     Active Substance: PAROXETINE

REACTIONS (3)
  - Wrong technique in device usage process [None]
  - Wrong schedule [None]
  - Product preparation error [None]

NARRATIVE: CASE EVENT DATE: 20180625
